FAERS Safety Report 8207926-1 (Version None)
Quarter: 2012Q1

REPORT INFORMATION
  Report Type: 
  Country: None (occurrence: None)
  Receive Date: 20120314
  Receipt Date: 20120312
  Transmission Date: 20120608
  Serious: Yes (Other)
  Sender: FDA-Public Use
  Company Number: US-PFIZER INC-2012041921

PATIENT
  Sex: Male
  Weight: 118 kg

DRUGS (1)
  1. CHANTIX [Suspect]
     Indication: SMOKING CESSATION THERAPY
     Dosage: 0.5 MG, DAILY
     Dates: start: 20120201, end: 20120201

REACTIONS (4)
  - CHEST PAIN [None]
  - ANXIETY [None]
  - PANIC ATTACK [None]
  - VOMITING [None]
